FAERS Safety Report 25338065 (Version 1)
Quarter: 2025Q2

REPORT INFORMATION
  Report Type: Spontaneous
  Country: GB (occurrence: GB)
  Receive Date: 20250520
  Receipt Date: 20250520
  Transmission Date: 20250717
  Serious: Yes (Other)
  Sender: SANDOZ
  Company Number: None

PATIENT
  Sex: Female

DRUGS (1)
  1. PIRFENIDONE [Suspect]
     Active Substance: PIRFENIDONE
     Indication: Product used for unknown indication
     Dosage: 267 MG 3 TDS
     Route: 065

REACTIONS (10)
  - Depressed mood [Unknown]
  - Gastrointestinal disorder [Unknown]
  - Oesophagitis [Unknown]
  - Gastrooesophageal reflux disease [Unknown]
  - Hot flush [Unknown]
  - Headache [Unknown]
  - Pain [Unknown]
  - Constipation [Unknown]
  - Insomnia [Unknown]
  - Diarrhoea [Unknown]
